FAERS Safety Report 21526213 (Version 3)
Quarter: 2022Q4

REPORT INFORMATION
  Report Type: Spontaneous
  Country: JP (occurrence: JP)
  Receive Date: 20221031
  Receipt Date: 20221129
  Transmission Date: 20230113
  Serious: Yes (Other)
  Sender: FDA-Public Use
  Company Number: JP-KYOWAKIRIN-2022AKK016438

PATIENT
  Age: 53 Year
  Sex: Female

DRUGS (5)
  1. PEGFILGRASTIM [Suspect]
     Active Substance: PEGFILGRASTIM
     Indication: Colony stimulating factor therapy
     Dosage: 3.6 MG
     Route: 058
     Dates: start: 20210517, end: 20210517
  2. DOCETAXEL [Concomitant]
     Active Substance: DOCETAXEL
     Indication: Breast cancer
     Dosage: 75 MG/M2
     Route: 041
     Dates: start: 20210514, end: 20210514
  3. DOCETAXEL [Concomitant]
     Active Substance: DOCETAXEL
     Dosage: 75 MG/M2
     Route: 041
     Dates: start: 20210618, end: 20210618
  4. DOCETAXEL [Concomitant]
     Active Substance: DOCETAXEL
     Dosage: 75 MG/M2
     Route: 041
     Dates: start: 20210719, end: 20210719
  5. DOCETAXEL [Concomitant]
     Active Substance: DOCETAXEL
     Dosage: 75 MG/M2
     Route: 041
     Dates: start: 20210730

REACTIONS (1)
  - Interstitial lung disease [Recovered/Resolved]

NARRATIVE: CASE EVENT DATE: 20210518
